FAERS Safety Report 9849467 (Version 1)
Quarter: 2014Q1

REPORT INFORMATION
  Report Type: Spontaneous
  Country: US (occurrence: US)
  Receive Date: 20140128
  Receipt Date: 20140128
  Transmission Date: 20141002
  Serious: No
  Sender: FDA-Public Use
  Company Number: US-009507513-1401USA005594

PATIENT
  Age: 53 Year
  Sex: Male

DRUGS (2)
  1. CLARITIN-D-24 [Suspect]
     Indication: NASOPHARYNGITIS
     Dosage: UNK, UNKNOWN
     Route: 048
     Dates: start: 201310
  2. CLARITIN-D-24 [Suspect]
     Indication: SINUS CONGESTION

REACTIONS (1)
  - Drug effect decreased [Unknown]
